FAERS Safety Report 9525231 (Version 1)
Quarter: 2013Q3

REPORT INFORMATION
  Report Type: Spontaneous
  Country: JP (occurrence: JP)
  Receive Date: 20130916
  Receipt Date: 20130916
  Transmission Date: 20140515
  Serious: Yes (Life-Threatening)
  Sender: FDA-Public Use
  Company Number: JP-ASTRAZENECA-2013SE68786

PATIENT
  Age: 42 Year
  Sex: Male
  Weight: 90 kg

DRUGS (1)
  1. MARCAIN [Suspect]
     Route: 037

REACTIONS (2)
  - Loss of consciousness [Recovered/Resolved]
  - Cardiac arrest [Recovered/Resolved]
